FAERS Safety Report 5984327-8 (Version None)
Quarter: 2008Q4

REPORT INFORMATION
  Report Type: 
  Country: None (occurrence: None)
  Receive Date: 20081208
  Receipt Date: 20081125
  Transmission Date: 20090506
  Serious: Yes (Hospitalization)
  Sender: FDA-Public Use
  Company Number: PHHY2008JP17345

PATIENT
  Age: 51 Year
  Sex: Female

DRUGS (4)
  1. SANDIMMUNE [Suspect]
     Indication: AUTOIMMUNE HEPATITIS
     Dosage: 3 MG/KG/D
     Route: 042
     Dates: start: 20070127, end: 20070201
  2. PREDNISOLONE [Concomitant]
     Indication: AUTOIMMUNE HEPATITIS
     Dosage: 40 MG/DAY
     Route: 048
     Dates: start: 20061122, end: 20070127
  3. PREDNISOLONE [Concomitant]
     Dosage: 25 MG/DAY
     Route: 048
     Dates: start: 20070127
  4. AZATHIOPRINE [Concomitant]

REACTIONS (2)
  - HYPERAMYLASAEMIA [None]
  - PNEUMOCYSTIS JIROVECI PNEUMONIA [None]
